FAERS Safety Report 10262704 (Version 2)
Quarter: 2014Q2

REPORT INFORMATION
  Report Type: Report from Study
  Country: US (occurrence: US)
  Receive Date: 20140626
  Receipt Date: 20140626
  Transmission Date: 20141212
  Serious: Yes (Other)
  Sender: FDA-Public Use
  Company Number: US-MYLANLABS-2013S1012502

PATIENT
  Age: 55 Year
  Sex: Female

DRUGS (12)
  1. CLOZAPINE TABLETS [Suspect]
     Indication: SCHIZOPHRENIA
     Route: 048
     Dates: start: 20130520, end: 20130529
  2. ASA [Concomitant]
     Route: 048
  3. ATORVASTATIN [Concomitant]
     Route: 048
  4. CLOPIDOGREL [Concomitant]
     Route: 048
  5. ENOXAPARIN [Concomitant]
     Route: 048
  6. FLUOXETINE [Concomitant]
     Route: 048
  7. FOLIC ACID [Concomitant]
     Route: 048
  8. DUONEB [Concomitant]
     Route: 048
  9. LOSARTAN [Concomitant]
     Route: 048
  10. METOPROLOL SUCCINATE [Concomitant]
     Route: 048
  11. POTASSIUM [Concomitant]
     Route: 048
  12. RANITIDINE [Concomitant]
     Route: 048

REACTIONS (2)
  - Granulocytopenia [Not Recovered/Not Resolved]
  - Leukopenia [Recovered/Resolved]
